FAERS Safety Report 5191212-0 (Version None)
Quarter: 2006Q4

REPORT INFORMATION
  Report Type: 
  Country: None (occurrence: None)
  Receive Date: 20061220
  Receipt Date: 20061220
  Transmission Date: 20070319
  Serious: Yes (Life-Threatening, Hospitalization)
  Sender: FDA-Public Use
  Company Number: None

PATIENT
  Age: 61 Year
  Sex: Female
  Weight: 77.9 kg

DRUGS (15)
  1. VANCOMYCIN [Suspect]
     Indication: PNEUMONIA
     Dosage: 1250 MG IV Q24H
     Route: 042
     Dates: start: 20060926, end: 20060927
  2. NS [Concomitant]
  3. LEVOFLOXACIN [Concomitant]
  4. M.V.I. [Concomitant]
  5. COLACE [Concomitant]
  6. LANTUS [Concomitant]
  7. PEPCID [Concomitant]
  8. VIT C [Concomitant]
  9. ALBUTEROL + ATROVENT [Concomitant]
  10. HUMALOG [Concomitant]
  11. ARIMIDEX [Concomitant]
  12. SYNTHROID [Concomitant]
  13. DILANTIN [Concomitant]
  14. LASIX [Concomitant]
  15. POTASSIUM CHLORIDE [Concomitant]

REACTIONS (6)
  - ANAPHYLACTIC REACTION [None]
  - HYPERSENSITIVITY [None]
  - HYPOTENSION [None]
  - OXYGEN SATURATION DECREASED [None]
  - RASH [None]
  - WHEEZING [None]
